FAERS Safety Report 20685711 (Version 1)
Quarter: 2022Q2

REPORT INFORMATION
  Report Type: Spontaneous
  Country: US (occurrence: US)
  Receive Date: 20220407
  Receipt Date: 20220407
  Transmission Date: 20220721
  Serious: No
  Sender: FDA-Public Use
  Company Number: US-PFIZER INC-2021725852

PATIENT
  Age: 74 Year

DRUGS (1)
  1. XALATAN [Suspect]
     Active Substance: LATANOPROST
     Dosage: UNK, 3X/DAY (QUANTITY FOR 90 DAYS)

REACTIONS (4)
  - Walking disability [Unknown]
  - Product prescribing error [Unknown]
  - Communication disorder [Unknown]
  - Confusional state [Unknown]
